FAERS Safety Report 9362764 (Version 1)
Quarter: 2013Q2

REPORT INFORMATION
  Report Type: Spontaneous
  Country: NL (occurrence: NL)
  Receive Date: 20130623
  Receipt Date: 20130623
  Transmission Date: 20140414
  Serious: Yes (Hospitalization)
  Sender: FDA-Public Use
  Company Number: NL-SANOFI-AVENTIS-2013SA061384

PATIENT
  Age: 88 Year
  Sex: Male

DRUGS (8)
  1. FUROSEMIDE [Suspect]
     Indication: HYPERTENSION
     Route: 048
     Dates: start: 2011
  2. SOTALOL [Suspect]
     Indication: HYPERTENSION
     Route: 048
     Dates: start: 2011
  3. VALSARTAN [Suspect]
     Indication: HYPERTENSION
     Route: 048
     Dates: start: 2011, end: 20130605
  4. TAMSULOSIN [Concomitant]
     Dosage: STRENGTH: 0.4 MG
     Route: 048
  5. AVODART [Concomitant]
     Dosage: STRENGTH: 0.5 MG
     Route: 048
  6. OMEPRAZOLE [Concomitant]
     Dosage: STRENGTH: 40 MG
     Route: 048
  7. ZOLPIDEM [Concomitant]
     Dosage: STRENGTH: 10 MG
     Route: 048
  8. CALCIUM CARBONATE/COLECALCIFEROL [Concomitant]
     Route: 048

REACTIONS (2)
  - Syncope [Recovering/Resolving]
  - Hypotension [Recovering/Resolving]
